FAERS Safety Report 5065497-5 (Version None)
Quarter: 2006Q3

REPORT INFORMATION
  Report Type: 
  Country: None (occurrence: None)
  Receive Date: 20060725
  Receipt Date: 20060714
  Transmission Date: 20061208
  Serious: Yes (Hospitalization)
  Sender: FDA-Public Use
  Company Number: 200617350GDDC

PATIENT
  Age: 60 Year
  Sex: Male

DRUGS (2)
  1. CISPLATIN [Suspect]
     Indication: NEOPLASM MALIGNANT
     Dosage: 100 MG/M**2 IV
     Route: 042
     Dates: start: 20060711, end: 20060711
  2. FLUOROURACIL [Suspect]
     Indication: NEOPLASM MALIGNANT
     Dosage: 1000 MG/M**2 IV
     Route: 042
     Dates: start: 20060711, end: 20060711

REACTIONS (2)
  - DIZZINESS [None]
  - SINUS BRADYCARDIA [None]
